FAERS Safety Report 5015984-0 (Version None)
Quarter: 2006Q2

REPORT INFORMATION
  Report Type: 
  Country: None (occurrence: None)
  Receive Date: 20060525
  Receipt Date: 20060505
  Transmission Date: 20061013
  Serious: Yes (Hospitalization, Disabling)
  Sender: FDA-Public Use
  Company Number: DE200605001681

PATIENT
  Age: 77 Year
  Sex: Female
  Weight: 68 kg

DRUGS (4)
  1. FORTEO [Suspect]
     Indication: OSTEOPOROSIS
     Dosage: 20 UG, DAILY (1/D),ORAL
     Route: 048
     Dates: start: 20041016
  2. FORTEO [Concomitant]
  3. CALCIUM (CALCIUM) [Concomitant]
  4. COLECALCIFEROL (COLECALCIFEROL) [Concomitant]

REACTIONS (1)
  - URINARY RETENTION POSTOPERATIVE [None]
